FAERS Safety Report 4406603-2 (Version None)
Quarter: 2004Q3

REPORT INFORMATION
  Report Type: 
  Country: None (occurrence: None)
  Receive Date: 20040723
  Receipt Date: 20040712
  Transmission Date: 20050211
  Serious: Yes (Other)
  Sender: FDA-Public Use
  Company Number: NL-GLAXOSMITHKLINE-B0339683A

PATIENT
  Age: 73 Year
  Sex: Female

DRUGS (3)
  1. VALACYCLOVIR HCL [Suspect]
     Indication: HERPES SIMPLEX OPHTHALMIC
     Dosage: 500MG TWICE PER DAY
     Route: 048
     Dates: start: 20040401, end: 20040606
  2. PRED FORTE OPHTHALMIC [Concomitant]
     Route: 047
     Dates: start: 20040421
  3. TIMOPTIC [Concomitant]
     Route: 047
     Dates: start: 20040421

REACTIONS (9)
  - ABDOMINAL DISTENSION [None]
  - ASTHENIA [None]
  - DYSPNOEA [None]
  - GASTROINTESTINAL DISORDER [None]
  - HALLUCINATION [None]
  - HYPERHIDROSIS [None]
  - MALAISE [None]
  - NIGHT SWEATS [None]
  - POLYDIPSIA [None]
